FAERS Safety Report 5670742-9 (Version None)
Quarter: 2008Q1

REPORT INFORMATION
  Report Type: 
  Country: None (occurrence: None)
  Receive Date: 20080318
  Receipt Date: 20080310
  Transmission Date: 20080703
  Serious: Yes (Other)
  Sender: FDA-Public Use
  Company Number: PHBS2008AT03166

PATIENT
  Age: 38 Year
  Sex: Male

DRUGS (2)
  1. SEBIVO [Suspect]
     Route: 065
  2. PEGASYS [Concomitant]

REACTIONS (1)
  - POLYNEUROPATHY [None]
